FAERS Safety Report 9257394 (Version 1)
Quarter: 2013Q1

REPORT INFORMATION
  Report Type: Spontaneous
  Country: US (occurrence: None)
  Receive Date: 20121212
  Receipt Date: 20121212
  Transmission Date: 20140127
  Serious: No
  Sender: FDA-Public Use
  Company Number: 1209USA005439

PATIENT
  Sex: Male

DRUGS (3)
  1. VICTRELIS [Suspect]
     Indication: HEPATITIS C
     Route: 048
     Dates: start: 201204
  2. PEGINTRON [Suspect]
     Route: 058
  3. RIBAVIRIN [Suspect]

REACTIONS (2)
  - Haemoglobin decreased [None]
  - White blood cell count decreased [None]
